FAERS Safety Report 7954395-2 (Version None)
Quarter: 2011Q4

REPORT INFORMATION
  Report Type: 
  Country: None (occurrence: None)
  Receive Date: 20111202
  Receipt Date: 20111122
  Transmission Date: 20120403
  Serious: Yes (Hospitalization)
  Sender: FDA-Public Use
  Company Number: US-GLAXOSMITHKLINE-A0915687A

PATIENT
  Age: 49 Year
  Sex: Male

DRUGS (1)
  1. AVANDIA [Suspect]
     Indication: DIABETES MELLITUS
     Dosage: 4MG PER DAY
     Route: 048
     Dates: start: 20030101, end: 20070801

REACTIONS (9)
  - CARDIAC ARREST [None]
  - ARRHYTHMIA [None]
  - VENTRICULAR DYSFUNCTION [None]
  - AMNESIA [None]
  - CORONARY ARTERY DISEASE [None]
  - IMPLANTABLE DEFIBRILLATOR INSERTION [None]
  - ISCHAEMIC CARDIOMYOPATHY [None]
  - CARDIAC FAILURE CHRONIC [None]
  - CORONARY ARTERY BYPASS [None]
